FAERS Safety Report 10433622 (Version 3)
Quarter: 2014Q3

REPORT INFORMATION
  Report Type: Spontaneous
  Country: JP (occurrence: JP)
  Receive Date: 20140905
  Receipt Date: 20140919
  Transmission Date: 20150326
  Serious: Yes (Hospitalization)
  Sender: FDA-Public Use
  Company Number: PHJP2014JP000809

PATIENT
  Age: 40 Year
  Sex: Male
  Weight: 75 kg

DRUGS (7)
  1. LYRICA [Concomitant]
     Active Substance: PREGABALIN
     Dosage: 75 MG, QD
     Route: 048
     Dates: start: 20140326, end: 20140504
  2. TRYPTANOL                               /AUS/ [Concomitant]
     Active Substance: AMITRIPTYLINE
     Indication: DEPRESSION
     Dosage: 10 MG, QD
     Route: 048
     Dates: start: 20140222, end: 20140415
  3. RIVOTRIL [Concomitant]
     Active Substance: CLONAZEPAM
     Indication: ANALGESIC THERAPY
     Dosage: 0.5 MG, QD
     Route: 048
     Dates: start: 20140326, end: 20140504
  4. TEGRETOL [Suspect]
     Active Substance: CARBAMAZEPINE
     Indication: TRIGEMINAL NEURALGIA
     Dosage: 200 MG, BID
     Route: 048
     Dates: start: 20140416, end: 20140422
  5. BENZA BLOCK NODO [Concomitant]
     Indication: ANALGESIC THERAPY
     Dosage: 2 DF, TID
     Route: 048
     Dates: start: 20140505, end: 20140506
  6. LYRICA [Concomitant]
     Active Substance: PREGABALIN
     Indication: ANALGESIC THERAPY
     Dosage: 75 MG, BID
     Route: 048
     Dates: start: 20130918, end: 20140325
  7. TEGRETOL [Suspect]
     Active Substance: CARBAMAZEPINE
     Dosage: 200 MG, TID
     Route: 048
     Dates: start: 20140423, end: 20140504

REACTIONS (11)
  - Eosinophil count increased [Unknown]
  - Drug reaction with eosinophilia and systemic symptoms [Recovering/Resolving]
  - Nasopharyngitis [Unknown]
  - Hepatic function abnormal [Recovering/Resolving]
  - Rash [Recovering/Resolving]
  - Skin exfoliation [Recovering/Resolving]
  - Flushing [Recovering/Resolving]
  - Lymphadenopathy [Unknown]
  - Pyrexia [Unknown]
  - Hepatitis acute [Unknown]
  - Epidermolysis [Unknown]

NARRATIVE: CASE EVENT DATE: 20140504
